FAERS Safety Report 5402729-5 (Version None)
Quarter: 2007Q3

REPORT INFORMATION
  Report Type: 
  Country: None (occurrence: None)
  Receive Date: 20070801
  Receipt Date: 20070604
  Transmission Date: 20080115
  Serious: Yes (Disabling, Other)
  Sender: FDA-Public Use
  Company Number: US-PURDUE-USA_2007_0027943

PATIENT
  Sex: Male

DRUGS (5)
  1. OXYCONTIN [Suspect]
     Indication: PAIN
     Dosage: 40 MG, Q4H
     Dates: start: 20010629, end: 20010828
  2. ENDOCET [Concomitant]
     Dosage: UNK, SEE TEXT
  3. VIOXX [Concomitant]
     Dosage: 25 MG, UNK
  4. CYCLOBENZAPRINE HCL [Concomitant]
     Dosage: 10 MG, UNK
  5. PROPOXY [Concomitant]
     Dosage: UNK, SEE TEXT

REACTIONS (5)
  - DISABILITY [None]
  - HALLUCINATION [None]
  - NIGHTMARE [None]
  - SUICIDAL IDEATION [None]
  - SURGERY [None]
